FAERS Safety Report 10151155 (Version 1)
Quarter: 2014Q2

REPORT INFORMATION
  Report Type: Spontaneous
  Country: CA (occurrence: CA)
  Receive Date: 20140502
  Receipt Date: 20140502
  Transmission Date: 20141212
  Serious: Yes (Other)
  Sender: FDA-Public Use
  Company Number: CA-AMGEN INC.-CANSP2014030723

PATIENT
  Age: 50 Year
  Sex: Male

DRUGS (2)
  1. NEUPOGEN [Suspect]
     Indication: NEUTROPENIA
     Dosage: 1 ML/300 MCG, UNK
     Route: 065
     Dates: start: 2012, end: 2012
  2. NEULASTA [Suspect]
     Indication: NEUTROPENIA
     Dosage: 10 MG/ML, UNK
     Route: 065
     Dates: start: 2012

REACTIONS (5)
  - Fatigue [Unknown]
  - Activities of daily living impaired [Unknown]
  - Bone pain [Unknown]
  - Myalgia [Unknown]
  - Gait disturbance [Unknown]
